FAERS Safety Report 19062778 (Version 1)
Quarter: 2021Q1

REPORT INFORMATION
  Report Type: Spontaneous
  Country: US (occurrence: US)
  Receive Date: 20210326
  Receipt Date: 20210326
  Transmission Date: 20210420
  Serious: No
  Sender: FDA-Public Use
  Company Number: US-GLAXOSMITHKLINE-US2021AMR070412

PATIENT
  Sex: Female

DRUGS (3)
  1. SUMATRIPTAN (SUMATRIPTAN SUCCINATE) [Suspect]
     Active Substance: SUMATRIPTAN SUCCINATE
     Indication: MIGRAINE
     Dosage: UNK
  2. SUMATRIPTAN (SUMATRIPTAN SUCCINATE) [Suspect]
     Active Substance: SUMATRIPTAN SUCCINATE
  3. RABEPRAZOL [Suspect]
     Active Substance: RABEPRAZOLE
     Indication: PRODUCT USED FOR UNKNOWN INDICATION
     Dosage: UNK

REACTIONS (2)
  - Drug ineffective [Unknown]
  - Dyspnoea [Unknown]
